FAERS Safety Report 17544734 (Version 1)
Quarter: 2020Q1

REPORT INFORMATION
  Report Type: Spontaneous
  Country: US (occurrence: US)
  Receive Date: 20200316
  Receipt Date: 20200316
  Transmission Date: 20200409
  Serious: No
  Sender: FDA-Public Use
  Company Number: US-PFIZER INC-2020112174

PATIENT
  Age: 49 Year
  Sex: Female
  Weight: 52.16 kg

DRUGS (2)
  1. BOTOX [Suspect]
     Active Substance: ONABOTULINUMTOXINA
     Dosage: UNK(30 GAUGE NEEDLE)
  2. SODIUM CHLORIDE. [Suspect]
     Active Substance: SODIUM CHLORIDE
     Dosage: UNK

REACTIONS (3)
  - Intentional product misuse [Recovered/Resolved]
  - Burning sensation [Recovered/Resolved]
  - Injection site erythema [Recovered/Resolved]
